FAERS Safety Report 6257510-4 (Version None)
Quarter: 2009Q3

REPORT INFORMATION
  Report Type: 
  Country: None (occurrence: None)
  Receive Date: 20090706
  Receipt Date: 20090629
  Transmission Date: 20100115
  Serious: Yes (Disabling, Other)
  Sender: FDA-Public Use
  Company Number: DE-WYE-G01590908

PATIENT
  Sex: Male
  Weight: 21 kg

DRUGS (10)
  1. REFACTO [Suspect]
     Indication: FACTOR VIII DEFICIENCY
     Dosage: 250-500 IE THREE TIMES PER WEEK
     Route: 042
     Dates: start: 19990617, end: 20010101
  2. REFACTO [Suspect]
     Dosage: 500-750 IE THREE TIMES PER WEEK
     Route: 042
     Dates: start: 20010101, end: 20030101
  3. REFACTO [Suspect]
     Dosage: 750 IE EVERY SECOND DAY (2500-3000IE PER WEEK)
     Route: 042
     Dates: start: 20030101, end: 20060101
  4. REFACTO [Suspect]
     Dosage: APPR. 3000IE PER WEEK FOR PROPHYLAXIS + 1000IE FOR SUBSTITUTION
     Route: 042
     Dates: start: 20060101, end: 20070101
  5. REFACTO [Suspect]
     Dosage: APPR. 4500IE PER WEEK FOR PROPHYLAXIS + 1000IE FOR SUBSTITUTION
     Route: 042
     Dates: start: 20070101, end: 20070101
  6. REFACTO [Suspect]
     Dosage: APPR. 6000IE PER WEEK FOR PROPHYLAXIS + 1000IE FOR SUBSTITUTION
     Route: 042
     Dates: start: 20070101, end: 20080101
  7. REFACTO [Suspect]
     Dosage: APPR. 6000IE PER WEEK FOR PROPHYLAXIS
     Route: 042
     Dates: start: 20080101, end: 20080101
  8. REFACTO [Suspect]
     Dosage: 6000IE PER WEEK FOR PROPHYLAXIS + 3000IE FOR SUBSTITUTION
     Route: 042
     Dates: start: 20080101, end: 20080101
  9. REFACTO [Suspect]
     Route: 042
     Dates: start: 20090101, end: 20090322
  10. REFACTO [Suspect]
     Dosage: 2000IE EVERY 1-2 DAYS (APPR. 10000 UE PER WEEK)
     Route: 042
     Dates: start: 20080101, end: 20090101

REACTIONS (2)
  - ANTI FACTOR VIII ANTIBODY POSITIVE [None]
  - DRUG INEFFECTIVE [None]
